FAERS Safety Report 6321484-8 (Version None)
Quarter: 2009Q3

REPORT INFORMATION
  Report Type: 
  Country: None (occurrence: None)
  Receive Date: 20090824
  Receipt Date: 20090812
  Transmission Date: 20100115
  Serious: Yes (Hospitalization, Other)
  Sender: FDA-Public Use
  Company Number: US-BIOGENIDEC-2009BI025693

PATIENT
  Age: 46 Year
  Sex: Female

DRUGS (3)
  1. AVONEX [Suspect]
     Indication: MULTIPLE SCLEROSIS
     Route: 030
     Dates: start: 19980101, end: 20040401
  2. AVONEX [Suspect]
     Route: 030
     Dates: start: 20060516, end: 20060901
  3. AVONEX [Suspect]
     Route: 030
     Dates: start: 20070926, end: 20080401

REACTIONS (2)
  - COLLAPSE OF LUNG [None]
  - INTERVERTEBRAL DISC OPERATION [None]
